FAERS Safety Report 6625631-X (Version None)
Quarter: 2010Q1

REPORT INFORMATION
  Report Type: 
  Country: None (occurrence: None)
  Receive Date: 20100310
  Receipt Date: 20100301
  Transmission Date: 20100710
  Serious: Yes (Hospitalization, Other)
  Sender: FDA-Public Use
  Company Number: RU-PFIZER INC-2010019892

PATIENT
  Age: 56 Year
  Sex: Female

DRUGS (3)
  1. ACCUPRO [Suspect]
     Indication: HYPERTENSION
     Dosage: 20 MG, DAILY
     Route: 048
     Dates: start: 20070101, end: 20100101
  2. ACCUPRO [Suspect]
     Dosage: 40 MG, DAILY
     Route: 048
     Dates: start: 20100101, end: 20100214
  3. ARIFON [Concomitant]
     Indication: HYPERTENSION
     Dosage: 1.5 MG, 1X/DAY
     Route: 048

REACTIONS (5)
  - BLOOD PRESSURE INCREASED [None]
  - DRUG INEFFECTIVE [None]
  - FAMILY STRESS [None]
  - ISCHAEMIC STROKE [None]
  - PRODUCT COUNTERFEIT [None]
